FAERS Safety Report 8859198 (Version 5)
Quarter: 2013Q1

REPORT INFORMATION
  Report Type: Spontaneous
  Country: US (occurrence: US)
  Receive Date: 20121024
  Receipt Date: 20130121
  Transmission Date: 20140127
  Serious: No
  Sender: FDA-Public Use
  Company Number: US-PFIZER INC-2012261805

PATIENT
  Sex: Male

DRUGS (5)
  1. GENOTROPIN MINIQUICK [Suspect]
     Dosage: 0.2 MG, UNK
  2. GENOTROPIN MINIQUICK [Suspect]
     Dosage: 0.2 MG, UNK
  3. GENOTROPIN MINIQUICK [Suspect]
     Dosage: 0.2 MG, UNK
  4. GENOTROPIN MINIQUICK [Suspect]
     Dosage: 0.2 MG, UNK
  5. GENOTROPIN MINIQUICK [Suspect]
     Dosage: 0.2 MG, UNK

REACTIONS (1)
  - Drug ineffective [Unknown]
